FAERS Safety Report 5065685-8 (Version None)
Quarter: 2006Q3

REPORT INFORMATION
  Report Type: 
  Country: None (occurrence: None)
  Receive Date: 20060726
  Receipt Date: 20060710
  Transmission Date: 20061208
  Serious: Yes (Death, Hospitalization)
  Sender: FDA-Public Use
  Company Number: 163-21880-06040494

PATIENT
  Age: 73 Year
  Sex: Male

DRUGS (1)
  1. REVLIMID [Suspect]
     Indication: MULTIPLE MYELOMA
     Dosage: 10 MG, 1 IN 1 D, ORAL
     Route: 048
     Dates: start: 20060228, end: 20060322

REACTIONS (6)
  - BLADDER OBSTRUCTION [None]
  - MALAISE [None]
  - NIGHT SWEATS [None]
  - PROSTATISM [None]
  - PYREXIA [None]
  - RENAL FAILURE [None]
